FAERS Safety Report 4281635-6 (Version None)
Quarter: 2004Q1

REPORT INFORMATION
  Report Type: 
  Country: None (occurrence: None)
  Receive Date: 20040120
  Receipt Date: 20031027
  Transmission Date: 20041129
  Serious: No
  Sender: FDA-Public Use
  Company Number: 2003-10-3267

PATIENT
  Sex: Male

DRUGS (2)
  1. CLARINEX [Suspect]
     Dosage: QAM  ORAL
     Route: 048
  2. UNSPECIFIED THERAPEUTIC AGENT [Suspect]
     Dosage: UNKNOWN NASAL SPRAY
     Route: 045

REACTIONS (2)
  - DRUG INEFFECTIVE [None]
  - EPISTAXIS [None]
